FAERS Safety Report 9371071 (Version 2)
Quarter: 2013Q3

REPORT INFORMATION
  Report Type: Report from Study
  Country: CO (occurrence: CO)
  Receive Date: 20130627
  Receipt Date: 20130710
  Transmission Date: 20140515
  Serious: Yes (Death)
  Sender: FDA-Public Use
  Company Number: CO-ROCHE-1241287

PATIENT
  Age: 24 Year
  Sex: Male

DRUGS (1)
  1. CELLCEPT [Suspect]
     Indication: LIVER TRANSPLANT
     Route: 048
     Dates: start: 20120227

REACTIONS (3)
  - Bile duct stenosis [Fatal]
  - Biliary tract disorder [Fatal]
  - Cardio-respiratory arrest [Fatal]
